FAERS Safety Report 6839213-8 (Version None)
Quarter: 2010Q3

REPORT INFORMATION
  Report Type: 
  Country: None (occurrence: None)
  Receive Date: 20100714
  Receipt Date: 20100630
  Transmission Date: 20110219
  Serious: Yes (Other)
  Sender: FDA-Public Use
  Company Number: US-BAYER-201012114NA

PATIENT
  Age: 49 Year
  Sex: Male
  Weight: 86 kg

DRUGS (30)
  1. MAGNEVIST [Suspect]
     Indication: NUCLEAR MAGNETIC RESONANCE IMAGING
     Route: 042
     Dates: start: 20010912, end: 20010912
  2. MAGNEVIST [Suspect]
     Route: 042
     Dates: start: 20030430, end: 20030430
  3. MAGNEVIST [Suspect]
     Dates: start: 20050614, end: 20050614
  4. OMNISCAN [Suspect]
     Indication: ARTERIOGRAM CAROTID
     Dosage: AS USED: 42 ML
     Dates: start: 20020715, end: 20020715
  5. OPTIMARK [Suspect]
     Indication: NUCLEAR MAGNETIC RESONANCE IMAGING BRAIN
     Dosage: AS USED: 20 ML
     Route: 042
     Dates: start: 20050516, end: 20050516
  6. UNSPECIFIED GADOLINIUM BASED CONTRAST AGENT [Suspect]
     Indication: NUCLEAR MAGNETIC RESONANCE IMAGING
     Route: 042
     Dates: start: 20030430, end: 20030430
  7. ZEMPLAR [Concomitant]
  8. ROBAXIN [Concomitant]
  9. RENAGEL [Concomitant]
  10. CELEBREX [Concomitant]
  11. NIFEREX [Concomitant]
  12. ALLOPURINOL [Concomitant]
  13. PROTONIX [Concomitant]
  14. MINOXIDIL [Concomitant]
  15. NEPHROCAPS [Concomitant]
  16. REGLAN [Concomitant]
  17. ACEON [Concomitant]
  18. LEVAQUIN [Concomitant]
  19. ROCALTROL [Concomitant]
  20. ASPIRIN [Concomitant]
  21. FERROUS SULFATE [Concomitant]
  22. PLAVIX [Concomitant]
  23. TOPROL-XL [Concomitant]
  24. LIPITOR [Concomitant]
  25. DIGOXIN [Concomitant]
  26. CORDARONE [Concomitant]
  27. PROTONIX [Concomitant]
  28. DOPAMINE HCL [Concomitant]
  29. HYDROXYZINE [Concomitant]
  30. PROCRIT [Concomitant]

REACTIONS (16)
  - ASTHENIA [None]
  - EXCORIATION [None]
  - EXFOLIATIVE RASH [None]
  - GENERALISED OEDEMA [None]
  - HYPOAESTHESIA [None]
  - NEPHROGENIC SYSTEMIC FIBROSIS [None]
  - NEURODERMATITIS [None]
  - OEDEMA PERIPHERAL [None]
  - PAIN IN EXTREMITY [None]
  - PRURITUS [None]
  - SCAB [None]
  - SKIN EXFOLIATION [None]
  - SKIN LESION [None]
  - SKIN ULCER [None]
  - SWELLING FACE [None]
  - ULCER [None]
